FAERS Safety Report 12975307 (Version 3)
Quarter: 2018Q1

REPORT INFORMATION
  Report Type: Spontaneous
  Country: US (occurrence: US)
  Receive Date: 20161125
  Receipt Date: 20180310
  Transmission Date: 20180508
  Serious: Yes (Hospitalization)
  Sender: FDA-Public Use
  Company Number: US-009507513-1611USA011618

PATIENT
  Sex: Female
  Weight: 84.81 kg

DRUGS (5)
  1. OLMESARTAN MEDOXOMIL (+) HYDROCHLOROTHIAZIDE [Suspect]
     Active Substance: HYDROCHLOROTHIAZIDE\OLMESARTAN MEDOXOMIL
     Dosage: 1/2 (20/12.5 MG), QD
     Route: 048
  2. HYDROCHLOROTHIAZIDE. [Suspect]
     Active Substance: HYDROCHLOROTHIAZIDE
     Indication: HYPERTENSION
     Dosage: 12.5 MG, QD
     Route: 048
  3. COZAAR [Suspect]
     Active Substance: LOSARTAN POTASSIUM
     Indication: PRODUCT USED FOR UNKNOWN INDICATION
     Dosage: UNK, UNKNOWN
     Route: 065
  4. OLMESARTAN MEDOXOMIL (+) HYDROCHLOROTHIAZIDE [Suspect]
     Active Substance: HYDROCHLOROTHIAZIDE\OLMESARTAN MEDOXOMIL
     Dosage: 1/4 (20/12.5 MG), QD
     Route: 048
  5. OLMESARTAN MEDOXOMIL (+) HYDROCHLOROTHIAZIDE [Suspect]
     Active Substance: HYDROCHLOROTHIAZIDE\OLMESARTAN MEDOXOMIL
     Indication: HYPERTENSION
     Dosage: 20/12.5 MG, QD
     Route: 048

REACTIONS (6)
  - Drug administration error [Unknown]
  - Headache [Recovering/Resolving]
  - Pneumonia [Recovered/Resolved]
  - Arthralgia [Recovering/Resolving]
  - Dyspepsia [Unknown]
  - Sprue-like enteropathy [Recovering/Resolving]
